FAERS Safety Report 5335976-1 (Version None)
Quarter: 2007Q2

REPORT INFORMATION
  Report Type: 
  Country: None (occurrence: None)
  Receive Date: 20070302
  Receipt Date: 20061123
  Transmission Date: 20071010
  Serious: Yes (Hospitalization)
  Sender: FDA-Public Use
  Company Number: 2472

PATIENT
  Age: 66 Year
  Sex: Female

DRUGS (1)
  1. TARGRETIN [Suspect]
     Indication: MYCOSIS FUNGOIDES
     Dosage: 450 MG DAILY PO
     Route: 048
     Dates: start: 20060401

REACTIONS (1)
  - LEUKOPENIA [None]
